FAERS Safety Report 21151648 (Version 1)
Quarter: 2022Q3

REPORT INFORMATION
  Report Type: Spontaneous
  Country: FR (occurrence: FR)
  Receive Date: 20220730
  Receipt Date: 20220730
  Transmission Date: 20221026
  Serious: Yes (Other)
  Sender: FDA-Public Use
  Company Number: None

PATIENT
  Age: 28 Year
  Sex: Female
  Weight: 52 kg

DRUGS (1)
  1. TOPIRAMATE [Suspect]
     Active Substance: TOPIRAMATE
     Indication: Migraine
     Dates: start: 20201201, end: 20220420

REACTIONS (3)
  - Weight decreased [Not Recovered/Not Resolved]
  - Nodule [Recovering/Resolving]
  - Granuloma [Recovering/Resolving]

NARRATIVE: CASE EVENT DATE: 20201201
